FAERS Safety Report 7373670-6 (Version None)
Quarter: 2011Q1

REPORT INFORMATION
  Report Type: 
  Country: None (occurrence: None)
  Receive Date: 20110325
  Receipt Date: 20101012
  Transmission Date: 20110831
  Serious: Yes (Hospitalization, Other)
  Sender: FDA-Public Use
  Company Number: US-BAYER-201030107NA

PATIENT
  Sex: Female
  Weight: 104.76 kg

DRUGS (7)
  1. LORATADINE [Concomitant]
     Dosage: UNK
     Route: 048
     Dates: start: 20060920
  2. KETOROLAC [Concomitant]
     Dosage: UNK
     Dates: start: 20071201
  3. YASMIN [Suspect]
     Indication: ACNE
     Dosage: UNK UNK, QD
     Route: 048
     Dates: start: 20050517, end: 20071206
  4. YASMIN [Suspect]
     Indication: POLYCYSTIC OVARIES
  5. PRILOSEC [Concomitant]
     Dosage: UNK
     Route: 048
     Dates: start: 20060621
  6. DIPHENHYDRAMINE [Concomitant]
     Dosage: UNK
     Route: 048
     Dates: start: 20060621
  7. METFORMIN [Concomitant]
     Dosage: UNK
     Route: 048
     Dates: start: 20060203

REACTIONS (11)
  - ABDOMINAL DISCOMFORT [None]
  - BILIARY TRACT DISORDER [None]
  - EMOTIONAL DISTRESS [None]
  - ABDOMINAL PAIN [None]
  - VOMITING [None]
  - CHOLELITHIASIS [None]
  - GALLBLADDER DISORDER [None]
  - BILE DUCT STONE [None]
  - CHOLECYSTITIS CHRONIC [None]
  - DYSPNOEA [None]
  - LIVER FUNCTION TEST ABNORMAL [None]
